FAERS Safety Report 17874916 (Version 1)
Quarter: 2020Q2

REPORT INFORMATION
  Report Type: Spontaneous
  Country: US (occurrence: US)
  Receive Date: 20200608
  Receipt Date: 20200608
  Transmission Date: 20200714
  Serious: Yes (Hospitalization)
  Sender: FDA-Public Use
  Company Number: None

PATIENT
  Age: 51 Year
  Sex: Female

DRUGS (8)
  1. FASLODEX [Concomitant]
     Active Substance: FULVESTRANT
  2. LANTUS [Concomitant]
     Active Substance: INSULIN GLARGINE
  3. VENTOLIN [Concomitant]
     Active Substance: ALBUTEROL SULFATE
  4. METHOTREXATE. [Concomitant]
     Active Substance: METHOTREXATE
  5. TRULICITY [Concomitant]
     Active Substance: DULAGLUTIDE
  6. PIQRAY [Suspect]
     Active Substance: ALPELISIB
     Indication: BREAST CANCER
     Route: 048
  7. PROCHLORPERAZINE. [Concomitant]
     Active Substance: PROCHLORPERAZINE
  8. DOCUSATE [Concomitant]
     Active Substance: DOCUSATE

REACTIONS (4)
  - Blood glucose increased [None]
  - Therapy interrupted [None]
  - Dehydration [None]
  - Eating disorder [None]

NARRATIVE: CASE EVENT DATE: 20200519
